FAERS Safety Report 10150316 (Version 2)
Quarter: 2014Q2

REPORT INFORMATION
  Report Type: Report from Study
  Country: CA (occurrence: CA)
  Receive Date: 20140502
  Receipt Date: 20140502
  Transmission Date: 20141212
  Serious: Yes (Other)
  Sender: FDA-Public Use
  Company Number: CA-BRISTOL-MYERS SQUIBB COMPANY-17419235

PATIENT
  Age: 24 Year
  Sex: Female

DRUGS (8)
  1. ORENCIA [Suspect]
     Indication: RHEUMATOID ARTHRITIS
     Dosage: 1 DF:500 UNITS NOS
     Route: 042
     Dates: start: 20130220
  2. PREDNISONE [Concomitant]
  3. ISONIAZID [Concomitant]
  4. SALAZOPYRIN [Concomitant]
  5. HYDROXYCHLOROQUINE [Concomitant]
  6. TRAMACET [Concomitant]
  7. NAPROXEN [Concomitant]
  8. PLAQUENIL [Concomitant]

REACTIONS (5)
  - Tuberculin test positive [Unknown]
  - Fatigue [Unknown]
  - Dizziness [Recovered/Resolved]
  - Vision blurred [Recovered/Resolved]
  - Cough [Not Recovered/Not Resolved]
